FAERS Safety Report 8164300-4 (Version None)
Quarter: 2012Q1

REPORT INFORMATION
  Report Type: 
  Country: None (occurrence: None)
  Receive Date: 20120224
  Receipt Date: 20110415
  Transmission Date: 20120608
  Serious: No
  Sender: FDA-Public Use
  Company Number: US-MYLANLABS-2011S1006642

PATIENT
  Age: 81 Year
  Sex: Female

DRUGS (4)
  1. ATENOLOL [Suspect]
     Indication: BLOOD PRESSURE
     Dates: start: 20110101, end: 20110315
  2. ASPIRIN [Concomitant]
  3. ACETAMINOPHEN [Concomitant]
  4. THYROID TAB [Concomitant]
     Indication: THYROID DISORDER

REACTIONS (4)
  - BLOOD PRESSURE INCREASED [None]
  - FATIGUE [None]
  - HEART RATE INCREASED [None]
  - DRUG INEFFECTIVE [None]
